FAERS Safety Report 19450627 (Version 1)
Quarter: 2021Q2

REPORT INFORMATION
  Report Type: Spontaneous
  Country: US (occurrence: US)
  Receive Date: 20210622
  Receipt Date: 20210622
  Transmission Date: 20210717
  Serious: Yes (Other)
  Sender: FDA-Public Use
  Company Number: US-PFIZER INC-2021681095

PATIENT
  Age: 58 Year
  Sex: Female

DRUGS (9)
  1. FUROSEMIDE. [Concomitant]
     Active Substance: FUROSEMIDE
  2. PREDNISONE. [Concomitant]
     Active Substance: PREDNISONE
  3. METHOTREXATE. [Concomitant]
     Active Substance: METHOTREXATE
  4. POTASSIUM CHLORIDE. [Concomitant]
     Active Substance: POTASSIUM CHLORIDE
  5. CELEXA [CELECOXIB] [Concomitant]
     Active Substance: CELECOXIB
  6. XELJANZ XR [Suspect]
     Active Substance: TOFACITINIB CITRATE
     Indication: RHEUMATOID ARTHRITIS
     Dosage: 11 MG, DAILY
     Route: 048
     Dates: start: 20210212, end: 202105
  7. ATENOLOL. [Concomitant]
     Active Substance: ATENOLOL
  8. XARELTO [Concomitant]
     Active Substance: RIVAROXABAN
  9. MULTIVITAMINS;MINERALS [Concomitant]
     Active Substance: MINERALS\VITAMINS

REACTIONS (2)
  - Pulmonary thrombosis [Unknown]
  - Thrombosis [Unknown]
